FAERS Safety Report 20304990 (Version 2)
Quarter: 2022Q3

REPORT INFORMATION
  Report Type: Spontaneous
  Country: US (occurrence: US)
  Receive Date: 20220106
  Receipt Date: 20220916
  Transmission Date: 20221027
  Serious: Yes (Death, Other)
  Sender: FDA-Public Use
  Company Number: US-SA-SAC20220104000093

PATIENT
  Age: 56 Year
  Sex: Male

DRUGS (1)
  1. ZANTAC [Suspect]
     Active Substance: RANITIDINE HYDROCHLORIDE
     Indication: Dyspepsia
     Dosage: UNK,FREQUENCY-OTHER
     Dates: start: 201501, end: 201701

REACTIONS (2)
  - Pancreatic carcinoma [Fatal]
  - Gastric cancer [Unknown]

NARRATIVE: CASE EVENT DATE: 20160624
